FAERS Safety Report 4843494-X (Version None)
Quarter: 2005Q4

REPORT INFORMATION
  Report Type: 
  Country: None (occurrence: None)
  Receive Date: 20051202
  Receipt Date: 20051121
  Transmission Date: 20060501
  Serious: Yes (Other)
  Sender: FDA-Public Use
  Company Number: PHEH2005US12791

PATIENT
  Age: 62 Year
  Sex: Male

DRUGS (4)
  1. LOTREL [Suspect]
     Indication: HYPERTENSION
     Dosage: 5/20MG, QD
     Route: 048
     Dates: start: 20051111
  2. TRILEPTAL [Concomitant]
     Dosage: 900MG
  3. AMITRIPTYLINE HCL [Concomitant]
     Dosage: 25MG, BID
  4. PROTONIX [Concomitant]
     Dosage: 40MG

REACTIONS (3)
  - BRAIN OPERATION [None]
  - DRUG INEFFECTIVE [None]
  - MENINGIOMA [None]
